FAERS Safety Report 5856770-9 (Version None)
Quarter: 2008Q3

REPORT INFORMATION
  Report Type: 
  Country: None (occurrence: None)
  Receive Date: 20080821
  Receipt Date: 20070906
  Transmission Date: 20090109
  Serious: Yes (Hospitalization, Other)
  Sender: FDA-Public Use
  Company Number: CQT2-2007-00014

PATIENT
  Age: 35 Year
  Sex: Female

DRUGS (8)
  1. ANAGRELIDE HCL [Suspect]
     Dosage: 1.5 MG, 1X/DAY:QD, ORAL; 0.5 MG, 2X/DAY:BID, ORAL; 0.5 MG, 2X/DAY:BID, ORAL
     Route: 048
     Dates: start: 20061222, end: 20070301
  2. ANAGRELIDE HCL [Suspect]
     Dosage: 1.5 MG, 1X/DAY:QD, ORAL; 0.5 MG, 2X/DAY:BID, ORAL; 0.5 MG, 2X/DAY:BID, ORAL
     Route: 048
     Dates: start: 20070525, end: 20070718
  3. ANAGRELIDE HCL [Suspect]
     Dosage: 1.5 MG, 1X/DAY:QD, ORAL; 0.5 MG, 2X/DAY:BID, ORAL; 0.5 MG, 2X/DAY:BID, ORAL
     Route: 048
     Dates: start: 20070726
  4. HYDROXYUREA [Suspect]
     Indication: ESSENTIAL THROMBOCYTHAEMIA
     Dosage: 500 MG, 1X/DAY:QD, ORAL; 1 G, 1X/DAY:QD, ORAL
     Route: 048
     Dates: start: 19980101, end: 20061120
  5. HYDROXYUREA [Suspect]
     Indication: ESSENTIAL THROMBOCYTHAEMIA
     Dosage: 500 MG, 1X/DAY:QD, ORAL; 1 G, 1X/DAY:QD, ORAL
     Route: 048
     Dates: start: 19980101
  6. PEGYLATED INTERFERON ALFA 2A(PEGYLATED INTERFERON ALFA 2A) [Suspect]
     Indication: ESSENTIAL THROMBOCYTHAEMIA
     Dosage: 45 UG, 1X/WEEK, SUBCUTANEOUS
     Route: 058
     Dates: start: 20070301, end: 20070529
  7. AMITRIPTYLINE HCL [Concomitant]
  8. ENOXAPARIN (ENOXAPARIN) INJECTION [Concomitant]

REACTIONS (3)
  - ABORTION SPONTANEOUS [None]
  - DRUG EXPOSURE DURING PREGNANCY [None]
  - TWIN PREGNANCY [None]
